FAERS Safety Report 13663186 (Version 1)
Quarter: 2017Q2

REPORT INFORMATION
  Report Type: Report from Study
  Country: FR (occurrence: FR)
  Receive Date: 20170619
  Receipt Date: 20170619
  Transmission Date: 20170830
  Serious: Yes (Other)
  Sender: FDA-Public Use
  Company Number: FR-CLOVIS-2017-0338-0068

PATIENT
  Age: 28 Year
  Sex: Female
  Weight: 57 kg

DRUGS (2)
  1. DECAPEPTYL [Concomitant]
     Active Substance: TRIPTORELIN
     Indication: MENOPAUSE
     Dates: start: 201706
  2. CO-338 [Suspect]
     Active Substance: RUCAPARIB
     Indication: BREAST CANCER METASTATIC
     Route: 048
     Dates: start: 20170405

REACTIONS (1)
  - Herpes zoster [Not Recovered/Not Resolved]

NARRATIVE: CASE EVENT DATE: 20170606
